FAERS Safety Report 6674014-5 (Version None)
Quarter: 2010Q2

REPORT INFORMATION
  Report Type: 
  Country: None (occurrence: None)
  Receive Date: 20100407
  Receipt Date: 20100329
  Transmission Date: 20101027
  Serious: Yes (Hospitalization)
  Sender: FDA-Public Use
  Company Number: 2010US000862

PATIENT
  Age: 5 Year
  Sex: Male
  Weight: 16 kg

DRUGS (4)
  1. TACROLIMUS [Suspect]
     Indication: DERMATITIS ATOPIC
     Dosage: 0.1 %, UNKNOWN/D, TOPICAL
     Route: 061
     Dates: start: 20071109
  2. ZOLOFT [Concomitant]
  3. XYZAL [Concomitant]
  4. FLUOCINONIDE (FLUOCINONIDE) CREAM [Concomitant]

REACTIONS (2)
  - COLITIS [None]
  - ILEUS [None]
